FAERS Safety Report 25752652 (Version 1)
Quarter: 2025Q3

REPORT INFORMATION
  Report Type: Spontaneous
  Country: US (occurrence: US)
  Receive Date: 20250902
  Receipt Date: 20250902
  Transmission Date: 20251020
  Serious: No
  Sender: PFIZER
  Company Number: US-PFIZER INC-PV202500104149

PATIENT
  Age: 41 Year
  Sex: Male

DRUGS (2)
  1. LORBRENA [Suspect]
     Active Substance: LORLATINIB
     Indication: Non-small cell lung cancer metastatic
     Dates: start: 20231122
  2. LORBRENA [Suspect]
     Active Substance: LORLATINIB
     Dates: start: 2024

REACTIONS (7)
  - Sleep apnoea syndrome [Unknown]
  - Weight increased [Unknown]
  - Nausea [Unknown]
  - Dyspnoea [Unknown]
  - Dehydration [Unknown]
  - Hyperhidrosis [Unknown]
  - Anger [Unknown]
